FAERS Safety Report 8257926-0 (Version None)
Quarter: 2012Q2

REPORT INFORMATION
  Report Type: 
  Country: None (occurrence: None)
  Receive Date: 20120404
  Receipt Date: 20120330
  Transmission Date: 20120825
  Serious: No
  Sender: FDA-Public Use
  Company Number: US-PFIZER INC-2012082177

PATIENT
  Sex: Female

DRUGS (4)
  1. LYRICA [Suspect]
     Dosage: UNK
  2. LYRICA [Suspect]
     Dosage: 100 MG, UNK
  3. LYRICA [Suspect]
     Dosage: 50 MG, UNK
  4. LYRICA [Suspect]
     Dosage: 50 MG, UNK

REACTIONS (3)
  - DIZZINESS [None]
  - SOMNOLENCE [None]
  - PAIN [None]
